FAERS Safety Report 6704709 (Version 2)
Quarter: 2012Q4

REPORT INFORMATION
  Report Type: 
  Country: CN (occurrence: CN)
  Receive Date: 20080721
  Receipt Date: 20121001
  Transmission Date: 20130627
  Serious: Yes (Other)
  Sender: FDA-Public Use
  Company Number: PHBS2008CN05092

PATIENT
  Age: 25 Year
  Sex: Male

DRUGS (2)
  1. TELBIVUDINE [Suspect]
     Indication: HEPATITIS B
     Dosage: 600 mg, QD
  2. INTERFERON [Concomitant]

REACTIONS (6)
  - Hypoaesthesia [Not Recovered/Not Resolved]
  - Myalgia [Recovered/Resolved]
  - Asthenia [Recovering/Resolving]
  - Blood creatine phosphokinase increased [Unknown]
  - Neuralgia [Unknown]
  - Fatigue [Unknown]
